FAERS Safety Report 9122259 (Version 1)
Quarter: 2013Q1

REPORT INFORMATION
  Report Type: Spontaneous
  Country: JP (occurrence: JP)
  Receive Date: 20130114
  Receipt Date: 20130114
  Transmission Date: 20140127
  Serious: Yes (Other)
  Sender: FDA-Public Use
  Company Number: JP-PFIZER INC-2012213026

PATIENT
  Age: 13 Year
  Sex: Female

DRUGS (3)
  1. METHOTREXATE SODIUM [Suspect]
     Indication: BURKITT^S LYMPHOMA
  2. DEXAMETHASONE SODIUM PHOSPHATE [Suspect]
     Indication: BURKITT^S LYMPHOMA
  3. VINCRISTINE [Suspect]
     Indication: BURKITT^S LYMPHOMA

REACTIONS (2)
  - Posterior reversible encephalopathy syndrome [Recovering/Resolving]
  - Convulsion [Recovering/Resolving]
